FAERS Safety Report 13075861 (Version 2)
Quarter: 2017Q2

REPORT INFORMATION
  Report Type: Spontaneous
  Country: US (occurrence: US)
  Receive Date: 20161230
  Receipt Date: 20170518
  Transmission Date: 20170830
  Serious: No
  Sender: FDA-Public Use
  Company Number: US-ALEXION PHARMACEUTICALS INC.-A201610240

PATIENT
  Sex: Male

DRUGS (1)
  1. STRENSIQ [Suspect]
     Active Substance: ASFOTASE ALFA
     Indication: HYPOPHOSPHATASIA
     Route: 058

REACTIONS (8)
  - Blood alkaline phosphatase abnormal [Unknown]
  - Hypersomnia [Unknown]
  - Vitamin B6 decreased [Recovering/Resolving]
  - Blood creatinine abnormal [Unknown]
  - Laboratory test abnormal [Unknown]
  - Disturbance in attention [Unknown]
  - Sluggishness [Unknown]
  - Amnesia [Unknown]

NARRATIVE: CASE EVENT DATE: 201703
